FAERS Safety Report 8574676-1 (Version None)
Quarter: 2012Q3

REPORT INFORMATION
  Report Type: 
  Country: None (occurrence: None)
  Receive Date: 20120807
  Receipt Date: 20120724
  Transmission Date: 20120928
  Serious: Yes (Other)
  Sender: FDA-Public Use
  Company Number: ES-GE HEALTHCARE MEDICAL DIAGNOSTICS-OMPQ-NO-1206S-0594

PATIENT
  Sex: Male

DRUGS (1)
  1. OMNIPAQUE 140 [Suspect]
     Indication: PRODUCT USED FOR UNKNOWN INDICATION
     Route: 042
     Dates: start: 20120612, end: 20120612

REACTIONS (4)
  - LARYNGEAL OEDEMA [None]
  - PRURITUS [None]
  - DYSPNOEA [None]
  - URTICARIA [None]
